FAERS Safety Report 20256718 (Version 1)
Quarter: 2021Q4

REPORT INFORMATION
  Report Type: Spontaneous
  Country: CN (occurrence: CN)
  Receive Date: 20211230
  Receipt Date: 20211230
  Transmission Date: 20220303
  Serious: Yes (Other)
  Sender: FDA-Public Use
  Company Number: CN-SA-SAC20211228000704

PATIENT
  Age: 64 Year
  Sex: Male

DRUGS (3)
  1. OXALIPLATIN [Suspect]
     Active Substance: OXALIPLATIN
     Indication: Chemotherapy
     Dosage: 200 MG, QW
     Route: 041
     Dates: start: 20211208, end: 20211208
  2. GEMCITABINE [Concomitant]
     Active Substance: GEMCITABINE
     Indication: Chemotherapy
     Dosage: 1.7 G, QW
     Route: 041
     Dates: start: 20211208, end: 20211208
  3. CAMRELIZUMAB [Concomitant]
     Active Substance: CAMRELIZUMAB
     Dosage: 200 MG, QW
     Route: 041
     Dates: start: 20211208, end: 20211208

REACTIONS (1)
  - Myelosuppression [Recovered/Resolved]

NARRATIVE: CASE EVENT DATE: 20211208
